FAERS Safety Report 20733864 (Version 1)
Quarter: 2022Q2

REPORT INFORMATION
  Report Type: Spontaneous
  Country: US (occurrence: US)
  Receive Date: 20220421
  Receipt Date: 20220421
  Transmission Date: 20220721
  Serious: Yes (Other)
  Sender: FDA-Public Use
  Company Number: US-Clinigen Group PLC/ Clinigen Healthcare Ltd-US-CLGN-22-00173

PATIENT
  Age: 68 Year
  Sex: Female

DRUGS (12)
  1. FOSCARNET SODIUM [Suspect]
     Active Substance: FOSCARNET SODIUM
     Indication: Cytomegalovirus viraemia
     Route: 042
  2. FOSCARNET SODIUM [Suspect]
     Active Substance: FOSCARNET SODIUM
     Route: 042
  3. FOSCARNET SODIUM [Suspect]
     Active Substance: FOSCARNET SODIUM
  4. FOSCARNET SODIUM [Suspect]
     Active Substance: FOSCARNET SODIUM
  5. FOSCARNET SODIUM [Suspect]
     Active Substance: FOSCARNET SODIUM
  6. TACROLIMUS [Concomitant]
     Active Substance: TACROLIMUS
     Indication: Immunosuppression
  7. TACROLIMUS [Concomitant]
     Active Substance: TACROLIMUS
     Dosage: TARGET OF 5-7 NG/ML
  8. TACROLIMUS [Concomitant]
     Active Substance: TACROLIMUS
  9. MYCOPHENOLATE MOFETIL [Concomitant]
     Active Substance: MYCOPHENOLATE MOFETIL
     Indication: Immunosuppression
  10. PREDNISONE [Concomitant]
     Active Substance: PREDNISONE
     Indication: Immunosuppression
  11. PREDNISONE [Concomitant]
     Active Substance: PREDNISONE
  12. LETERMOVIR [Concomitant]
     Active Substance: LETERMOVIR
     Indication: Cytomegalovirus viraemia

REACTIONS (4)
  - Nephrolithiasis [Unknown]
  - Nephropathy toxic [Unknown]
  - Electrolyte imbalance [Unknown]
  - Off label use [Unknown]
